FAERS Safety Report 6156516-3 (Version None)
Quarter: 2009Q2

REPORT INFORMATION
  Report Type: 
  Country: None (occurrence: None)
  Receive Date: 20090413
  Receipt Date: 20090305
  Transmission Date: 20091009
  Serious: Yes (Death)
  Sender: FDA-Public Use
  Company Number: OPER20090032

PATIENT
  Age: 58 Year
  Sex: Female

DRUGS (9)
  1. OPANA ER [Suspect]
     Indication: BACK PAIN
     Dosage: 10 MG, BID, PER ORAL
     Route: 048
     Dates: start: 20070619, end: 20090113
  2. XANAX [Suspect]
     Indication: ANXIETY
     Dosage: 1 MG, PRN, ORAL
     Route: 048
  3. PROMETHAZINE [Suspect]
     Dosage: 25 MG, PRN, PER ORAL
     Route: 048
  4. ZOLPIDEM [Suspect]
     Indication: INSOMNIA
     Dosage: 10 MG, QHS, ORAL
     Route: 048
  5. PROZAC [Suspect]
     Dosage: ORAL
     Route: 048
  6. TOPAMAX [Suspect]
     Indication: INTERCOSTAL NEURALGIA
     Dosage: 50 MG, BID, ORAL
     Route: 048
  7. TOPAMAX [Suspect]
     Indication: TRIGEMINAL NEURALGIA
     Dosage: 50 MG, BID, ORAL
     Route: 048
  8. NEXIUM [Suspect]
     Dosage: 40 MG, ORAL
     Route: 048
  9. PROTONIX [Suspect]
     Dosage: ORAL
     Route: 048

REACTIONS (10)
  - BLASTOCYSTIS INFECTION [None]
  - CARDIAC ARREST [None]
  - CHEST PAIN [None]
  - CLOSTRIDIUM DIFFICILE COLITIS [None]
  - MULTIPLE DRUG OVERDOSE ACCIDENTAL [None]
  - NO THERAPEUTIC RESPONSE [None]
  - PUPIL FIXED [None]
  - UNRESPONSIVE TO STIMULI [None]
  - URINARY TRACT INFECTION [None]
  - WALKING AID USER [None]
